FAERS Safety Report 7276801-1 (Version None)
Quarter: 2011Q1

REPORT INFORMATION
  Report Type: 
  Country: None (occurrence: None)
  Receive Date: 20110207
  Receipt Date: 20110124
  Transmission Date: 20110831
  Serious: Yes (Hospitalization)
  Sender: FDA-Public Use
  Company Number: US-BIOGENIDEC-2010BI019986

PATIENT
  Age: 29 Year
  Sex: Female

DRUGS (11)
  1. CELEXA [Concomitant]
  2. ZANAFLEX [Concomitant]
  3. TYSABRI [Suspect]
     Indication: MULTIPLE SCLEROSIS
     Route: 042
     Dates: start: 20081218, end: 20100329
  4. TYSABRI [Suspect]
     Route: 042
     Dates: start: 20050204, end: 20050201
  5. LABETALOL HCL [Concomitant]
  6. DEMEROL [Concomitant]
     Dates: start: 20100801
  7. CALCIUM [Concomitant]
  8. CRANBERRY SUPPLEMENT [Concomitant]
  9. VITAMIN D [Concomitant]
  10. PRENATAL PLUS [Concomitant]
     Dates: start: 20100501
  11. PHENERGAN [Concomitant]
     Dates: start: 20100701

REACTIONS (3)
  - PREGNANCY [None]
  - COMPLICATION OF DELIVERY [None]
  - TRANSVERSE PRESENTATION [None]
